FAERS Safety Report 18577749 (Version 2)
Quarter: 2021Q3

REPORT INFORMATION
  Report Type: Spontaneous
  Country: US (occurrence: US)
  Receive Date: 20201204
  Receipt Date: 20210917
  Transmission Date: 20211014
  Serious: No
  Sender: FDA-Public Use
  Company Number: US-TEVA-2020-US-1855187

PATIENT
  Sex: Female

DRUGS (2)
  1. GLATIRAMER ACETATE. [Suspect]
     Active Substance: GLATIRAMER ACETATE
     Route: 065
  2. AUTOJECT (DEVICE) [Suspect]
     Active Substance: DEVICE
     Route: 065

REACTIONS (6)
  - Lack of injection site rotation [Unknown]
  - Injection site extravasation [Unknown]
  - Device defective [Unknown]
  - Device delivery system issue [Unknown]
  - Incorrect dose administered by device [Unknown]
  - Accidental exposure to product [Unknown]
